FAERS Safety Report 5630859-1 (Version None)
Quarter: 2008Q1

REPORT INFORMATION
  Report Type: 
  Country: None (occurrence: None)
  Receive Date: 20080131
  Receipt Date: 20071119
  Transmission Date: 20080703
  Serious: No
  Sender: FDA-Public Use
  Company Number: 163-21880-07101253

PATIENT
  Age: 52 Year

DRUGS (3)
  1. REVLIMID [Suspect]
     Indication: MULTIPLE MYELOMA
     Dosage: 25 MG, DAILY X 21 DAYS, ORAL
     Route: 048
     Dates: start: 20070216
  2. ACYCLOVIR [Concomitant]
  3. COUMADIN [Concomitant]

REACTIONS (4)
  - GLOMERULAR FILTRATION RATE DECREASED [None]
  - HEPATIC ENZYME INCREASED [None]
  - PALPITATIONS [None]
  - WHITE BLOOD CELL COUNT DECREASED [None]
